FAERS Safety Report 8270921-0 (Version None)
Quarter: 2012Q2

REPORT INFORMATION
  Report Type: 
  Country: None (occurrence: None)
  Receive Date: 20120410
  Receipt Date: 20120405
  Transmission Date: 20120825
  Serious: Yes (Other)
  Sender: FDA-Public Use
  Company Number: US-PFIZER INC-2012086698

PATIENT
  Sex: Female
  Weight: 64.4 kg

DRUGS (4)
  1. PREMARIN [Suspect]
     Indication: MENSTRUAL DISORDER
  2. PROVERA [Suspect]
     Indication: ENDOMETRIOSIS
     Dosage: 2.5 MG, DAILY
     Dates: start: 19890101
  3. PROVERA [Suspect]
     Indication: MENSTRUAL DISORDER
  4. PREMARIN [Suspect]
     Indication: ENDOMETRIOSIS
     Dosage: 0.625 MG, DAILY
     Dates: start: 19890101

REACTIONS (1)
  - INTERVERTEBRAL DISC PROTRUSION [None]
